FAERS Safety Report 8546088-8 (Version None)
Quarter: 2012Q3

REPORT INFORMATION
  Report Type: 
  Country: None (occurrence: None)
  Receive Date: 20120727
  Receipt Date: 20111208
  Transmission Date: 20120928
  Serious: No
  Sender: FDA-Public Use
  Company Number: US-ASTRAZENECA-2011SE74424

PATIENT
  Age: 46 Year
  Sex: Female
  Weight: 84.4 kg

DRUGS (6)
  1. SEROQUEL XR [Suspect]
     Indication: SCHIZOPHRENIA
     Route: 048
  2. SEROQUEL XR [Suspect]
     Route: 048
     Dates: start: 20030101
  3. SEROQUEL XR [Suspect]
     Route: 048
     Dates: start: 20030101
  4. SEROQUEL XR [Suspect]
     Indication: DEPRESSION
     Route: 048
  5. SEROQUEL XR [Suspect]
     Indication: BIPOLAR DISORDER
     Route: 048
  6. SEROQUEL XR [Suspect]
     Route: 048
     Dates: start: 20030101

REACTIONS (3)
  - STRESS [None]
  - MENTAL DISORDER [None]
  - DRUG DOSE OMISSION [None]
